FAERS Safety Report 25130512 (Version 1)
Quarter: 2025Q1

REPORT INFORMATION
  Report Type: Spontaneous
  Country: BR (occurrence: BR)
  Receive Date: 20250327
  Receipt Date: 20250327
  Transmission Date: 20250408
  Serious: Yes (Other)
  Sender: SANDOZ
  Company Number: BR-002147023-NVSC2022BR292282

PATIENT
  Age: 68 Year
  Sex: Female
  Weight: 62 kg

DRUGS (5)
  1. EXFORGE HCT [Suspect]
     Active Substance: AMLODIPINE BESYLATE\HYDROCHLOROTHIAZIDE\VALSARTAN
     Indication: Hypertension
     Dosage: 1 DOSAGE FORM (320/25/10 MG), QD
     Route: 048
     Dates: start: 2022
  2. EXFORGE HCT [Suspect]
     Active Substance: AMLODIPINE BESYLATE\HYDROCHLOROTHIAZIDE\VALSARTAN
     Dosage: 160 MG + 12.5 MG + 5 MG, QD
     Route: 065
  3. EXFORGE HCT [Suspect]
     Active Substance: AMLODIPINE BESYLATE\HYDROCHLOROTHIAZIDE\VALSARTAN
     Dosage: 160 MG + 12.5 MG + 5 MG, EVERY OTHER DAY
     Route: 065
  4. LOSARTAN [Suspect]
     Active Substance: LOSARTAN
     Indication: Product used for unknown indication
     Dosage: 1 DOSAGE FORM, QD
     Route: 065
     Dates: start: 202103, end: 2022
  5. COUMARIN\TROXERUTIN [Concomitant]
     Active Substance: COUMARIN\TROXERUTIN
     Indication: Varicose vein
     Dosage: 1 DOSAGE FORM, BID
     Route: 048

REACTIONS (18)
  - Blood pressure increased [Unknown]
  - Blood pressure increased [Recovered/Resolved]
  - Pain in extremity [Not Recovered/Not Resolved]
  - Discomfort [Unknown]
  - Cardiovascular disorder [Unknown]
  - Pain [Unknown]
  - Anxiety [Unknown]
  - Fatigue [Unknown]
  - Malaise [Not Recovered/Not Resolved]
  - Weight decreased [Not Recovered/Not Resolved]
  - Paraesthesia [Unknown]
  - Hypoaesthesia [Unknown]
  - Drug ineffective [Unknown]
  - Therapeutic product effect incomplete [Unknown]
  - Wrong technique in product usage process [Unknown]
  - Inappropriate schedule of product administration [Unknown]
  - Product packaging quantity issue [Unknown]
  - Product packaging issue [Unknown]

NARRATIVE: CASE EVENT DATE: 20230101
